FAERS Safety Report 9703390 (Version 1)
Quarter: 2013Q4

REPORT INFORMATION
  Report Type: Spontaneous
  Country: US (occurrence: None)
  Receive Date: 20131121
  Receipt Date: 20131121
  Transmission Date: 20140711
  Serious: Yes (Death, Life-Threatening)
  Sender: FDA-Public Use
  Company Number: None

PATIENT
  Age: 74 Year
  Sex: Male
  Weight: 93 kg

DRUGS (2)
  1. GEMCITABINE [Suspect]
     Indication: PANCREATIC CARCINOMA
     Dosage: 1000 MG/M2 (2110 MG), ONCE, IV?
     Dates: start: 20131105
  2. ABRAXANE [Suspect]
     Dosage: 125 MG/M2 (264 MG), ONCE, IV
     Route: 042

REACTIONS (5)
  - Renal failure acute [None]
  - Hypotension [None]
  - Cardiomyopathy [None]
  - Atrial fibrillation [None]
  - Multi-organ failure [None]
